FAERS Safety Report 20553191 (Version 2)
Quarter: 2022Q1

REPORT INFORMATION
  Report Type: Report from Study
  Country: EG (occurrence: EG)
  Receive Date: 20220304
  Receipt Date: 20220329
  Transmission Date: 20220424
  Serious: Yes (Other)
  Sender: FDA-Public Use
  Company Number: EG-JNJFOC-20220214416

PATIENT
  Age: 59 Year
  Sex: Male

DRUGS (2)
  1. IMBRUVICA [Suspect]
     Active Substance: IBRUTINIB
     Indication: Chronic lymphocytic leukaemia
     Dosage: 3 TABLETS PER DAY
     Route: 048
     Dates: start: 20210701, end: 20211115
  2. IMBRUVICA [Suspect]
     Active Substance: IBRUTINIB
     Route: 048
     Dates: end: 202112

REACTIONS (5)
  - Cardiac dysfunction [Unknown]
  - Dry skin [Not Recovered/Not Resolved]
  - Nasopharyngitis [Recovered/Resolved]
  - Anaemia [Unknown]
  - White blood cell count decreased [Unknown]

NARRATIVE: CASE EVENT DATE: 20220103
